APPROVED DRUG PRODUCT: CLOBETASOL PROPIONATE
Active Ingredient: CLOBETASOL PROPIONATE
Strength: 0.05%
Dosage Form/Route: AEROSOL, FOAM;TOPICAL
Application: A206805 | Product #001
Applicant: NOVAST LABORATORIES LTD
Approved: Jul 31, 2017 | RLD: No | RS: No | Type: DISCN